FAERS Safety Report 4499156-4 (Version None)
Quarter: 2004Q4

REPORT INFORMATION
  Report Type: 
  Country: None (occurrence: None)
  Receive Date: 20041109
  Receipt Date: 20041109
  Transmission Date: 20050328
  Serious: Yes (Other)
  Sender: FDA-Public Use
  Company Number: None

PATIENT
  Age: 77 Year
  Sex: Female
  Weight: 53.0709 kg

DRUGS (2)
  1. ULTRAM [Suspect]
     Indication: ARTHRITIS
     Dosage: 50 MG TID
  2. ULTRAM [Suspect]
     Indication: BACK PAIN
     Dosage: 50 MG TID

REACTIONS (5)
  - DRUG EFFECT DECREASED [None]
  - DYSGEUSIA [None]
  - EATING DISORDER [None]
  - PHARMACEUTICAL PRODUCT COMPLAINT [None]
  - WEIGHT DECREASED [None]
